FAERS Safety Report 8294028-1 (Version None)
Quarter: 2012Q2

REPORT INFORMATION
  Report Type: 
  Country: None (occurrence: None)
  Receive Date: 20120413
  Receipt Date: 20120413
  Transmission Date: 20120825
  Serious: No
  Sender: FDA-Public Use
  Company Number: None

PATIENT
  Age: 70 Year
  Sex: Female

DRUGS (3)
  1. NITROFURANTOIN MACROCRYSTALLINE [Suspect]
     Dates: start: 20030423, end: 20050203
  2. REVATIO [Concomitant]
  3. LIPITOR [Suspect]
     Dates: start: 20040504, end: 20050203

REACTIONS (5)
  - DIZZINESS [None]
  - FOREIGN TRAVEL [None]
  - NAUSEA [None]
  - ALANINE AMINOTRANSFERASE INCREASED [None]
  - ASPARTATE AMINOTRANSFERASE INCREASED [None]
